FAERS Safety Report 13834514 (Version 1)
Quarter: 2017Q3

REPORT INFORMATION
  Report Type: Spontaneous
  Country: US (occurrence: US)
  Receive Date: 20170804
  Receipt Date: 20170804
  Transmission Date: 20171127
  Serious: No
  Sender: FDA-Public Use
  Company Number: US-PRINSTON PHARMACEUTICAL INC.-2017PRN00297

PATIENT
  Age: 41 Year
  Sex: Female

DRUGS (4)
  1. CLONAZEPAM. [Suspect]
     Active Substance: CLONAZEPAM
     Indication: ANXIETY
     Dosage: AT BEDTIME AND ONE AS NEEDED DURING THE DAY FOR ANXIETY ATTACK
  2. AMITRIPTYLINE [Suspect]
     Active Substance: AMITRIPTYLINE
     Indication: SLEEP DISORDER
     Dosage: AT BEDTIME
  3. CLONAZEPAM. [Suspect]
     Active Substance: CLONAZEPAM
     Indication: SLEEP DISORDER
  4. ADDERALL [Suspect]
     Active Substance: AMPHETAMINE ASPARTATE\AMPHETAMINE SULFATE\DEXTROAMPHETAMINE SACCHARATE\DEXTROAMPHETAMINE SULFATE

REACTIONS (9)
  - Chronic fatigue syndrome [Unknown]
  - Insomnia [Unknown]
  - Sleep terror [Unknown]
  - Fibromyalgia [Unknown]
  - Injury [Unknown]
  - Somnolence [Unknown]
  - Unevaluable event [Unknown]
  - Abnormal sleep-related event [Unknown]
  - Intentional product use issue [Unknown]
